FAERS Safety Report 10159246 (Version 1)
Quarter: 2014Q2

REPORT INFORMATION
  Report Type: Spontaneous
  Country: MX (occurrence: None)
  Receive Date: 20140506
  Receipt Date: 20140506
  Transmission Date: 20141212
  Serious: Yes (Hospitalization)
  Sender: FDA-Public Use
  Company Number: 2014P1003584

PATIENT
  Age: 16 Year
  Sex: Male

DRUGS (4)
  1. PREDNISONE TABLETS [Suspect]
     Indication: ACUTE LYMPHOCYTIC LEUKAEMIA
  2. L-ASPARAGINASE [Suspect]
     Indication: ACUTE LYMPHOCYTIC LEUKAEMIA
  3. MITOXANTRONE [Concomitant]
  4. VINCRISTINE [Concomitant]

REACTIONS (3)
  - Diabetic ketoacidosis [None]
  - Pancreatitis acute [None]
  - Mallory-Weiss syndrome [None]
